FAERS Safety Report 9785358 (Version 1)
Quarter: 2013Q4

REPORT INFORMATION
  Report Type: Spontaneous
  Country: US (occurrence: None)
  Receive Date: 20131227
  Receipt Date: 20131227
  Transmission Date: 20140711
  Serious: Yes (Life-Threatening)
  Sender: FDA-Public Use
  Company Number: None

PATIENT
  Sex: 0

DRUGS (1)
  1. LEXISCAN [Suspect]
     Indication: SCAN MYOCARDIAL PERFUSION
     Dosage: PRE FILLES SYRINGE INTRAVENOUS
     Route: 042

REACTIONS (3)
  - Product sterility lacking [None]
  - Product quality issue [None]
  - Product measured potency issue [None]
